FAERS Safety Report 5639056-7 (Version None)
Quarter: 2008Q1

REPORT INFORMATION
  Report Type: 
  Country: None (occurrence: None)
  Receive Date: 20080226
  Receipt Date: 20080213
  Transmission Date: 20080703
  Serious: Yes (Other)
  Sender: FDA-Public Use
  Company Number: US-ELI_LILLY_AND_COMPANY-US200802003230

PATIENT
  Sex: Female
  Weight: 61.224 kg

DRUGS (5)
  1. CYMBALTA [Suspect]
     Indication: NEURALGIA
     Dosage: 60 MG, DAILY (1/D)
     Dates: start: 20070301
  2. CYMBALTA [Suspect]
     Dosage: 60 MG, QOD
     Dates: end: 20071015
  3. CYMBALTA [Suspect]
     Dosage: 30 MG, QOD
  4. CYMBALTA [Suspect]
     Dosage: 30 MG, DAILY (1/D)
     Dates: start: 20071016
  5. CYMBALTA [Suspect]
     Dosage: 30 MG, QOD
     Dates: end: 20071128

REACTIONS (2)
  - DISTURBANCE IN ATTENTION [None]
  - DRUG WITHDRAWAL SYNDROME [None]
